FAERS Safety Report 9437367 (Version 3)
Quarter: 2013Q3

REPORT INFORMATION
  Report Type: Spontaneous
  Country: US (occurrence: US)
  Receive Date: 20130802
  Receipt Date: 20130927
  Transmission Date: 20140515
  Serious: Yes (Hospitalization)
  Sender: FDA-Public Use
  Company Number: US-UCBSA-093203

PATIENT
  Age: 33 Year
  Sex: Male

DRUGS (1)
  1. CIMZIA [Suspect]
     Indication: CROHN^S DISEASE
     Dosage: INJECTION SITE: RIGHT ABDOMEN; LOT NO:098838; EXPIRATION DATE: ??/DEC/2015
     Route: 058
     Dates: start: 20130425

REACTIONS (1)
  - Dehydration [Not Recovered/Not Resolved]
